FAERS Safety Report 14672282 (Version 3)
Quarter: 2019Q1

REPORT INFORMATION
  Report Type: Report from Study
  Country: US (occurrence: US)
  Receive Date: 20180323
  Receipt Date: 20190307
  Transmission Date: 20190417
  Serious: Yes (Other)
  Sender: FDA-Public Use
  Company Number: PHEH2018US009621

PATIENT
  Sex: Female

DRUGS (2)
  1. ENTRESTO [Suspect]
     Active Substance: SACUBITRIL\VALSARTAN
     Indication: VIRAL MYOCARDITIS
     Dosage: 1 DF, BID
     Route: 048
  2. ENTRESTO [Suspect]
     Active Substance: SACUBITRIL\VALSARTAN
     Dosage: 2 DF, BID
     Route: 048

REACTIONS (8)
  - Rhinorrhoea [Unknown]
  - Atrial fibrillation [Unknown]
  - Hypertension [Unknown]
  - Weight decreased [Unknown]
  - Fluid retention [Unknown]
  - Blood glucose increased [Unknown]
  - Malaise [Unknown]
  - Product use in unapproved indication [Unknown]
